FAERS Safety Report 5498364-3 (Version None)
Quarter: 2007Q4

REPORT INFORMATION
  Report Type: 
  Country: None (occurrence: None)
  Receive Date: 20071025
  Receipt Date: 20071018
  Transmission Date: 20080405
  Serious: Yes (Other)
  Sender: FDA-Public Use
  Company Number: US-GENENTECH-249826

PATIENT
  Sex: Male
  Weight: 33.2 kg

DRUGS (3)
  1. SOMATROPIN [Suspect]
     Indication: ENDOCRINE DISORDER
     Dosage: 1.6 MG, QD
     Route: 058
     Dates: start: 20060420
  2. ARIMIDEX [Concomitant]
     Indication: DRUG USE FOR UNKNOWN INDICATION
     Dosage: 1 MG, QD
     Route: 048
     Dates: start: 20070503
  3. FLONASE [Concomitant]
     Indication: DRUG USE FOR UNKNOWN INDICATION
     Dosage: 50 A?G, QD
     Route: 045
     Dates: start: 20070503

REACTIONS (1)
  - OSTEOCHONDROMA [None]
